FAERS Safety Report 10960086 (Version 2)
Quarter: 2015Q2

REPORT INFORMATION
  Report Type: Spontaneous
  Country: US (occurrence: None)
  Receive Date: 20150325
  Receipt Date: 20150421
  Transmission Date: 20150821
  Serious: Yes (Other)
  Sender: FDA-Public Use
  Company Number: 2015SA031209

PATIENT
  Age: 58 Year
  Sex: Female
  Weight: 80 kg

DRUGS (1)
  1. ICY HOT MEDICATED, BACK [Suspect]
     Active Substance: MENTHOL
     Indication: BACK PAIN
     Route: 061

REACTIONS (3)
  - Scar [None]
  - Application site burn [None]
  - Application site vesicles [None]

NARRATIVE: CASE EVENT DATE: 20150302
